FAERS Safety Report 18526780 (Version 1)
Quarter: 2020Q4

REPORT INFORMATION
  Report Type: Report from Study
  Country: US (occurrence: US)
  Receive Date: 20201120
  Receipt Date: 20201120
  Transmission Date: 20210114
  Serious: Yes (Hospitalization)
  Sender: FDA-Public Use
  Company Number: US-JNJFOC-A-US2016-135724

PATIENT
  Age: 54 Year
  Sex: Female

DRUGS (16)
  1. RIOCIGUAT. [Suspect]
     Active Substance: RIOCIGUAT
     Indication: PRODUCT USED FOR UNKNOWN INDICATION
     Dosage: 2 MG, TID
     Route: 065
     Dates: start: 20160220
  2. METOPROLOL. [Concomitant]
     Active Substance: METOPROLOL
  3. OPSUMIT [Suspect]
     Active Substance: MACITENTAN
     Indication: PULMONARY HYPERTENSION
     Dosage: 10 MG, QD
     Route: 048
     Dates: start: 20160321
  4. REMODULIN [Suspect]
     Active Substance: TREPROSTINIL
     Indication: PRODUCT USED FOR UNKNOWN INDICATION
     Route: 065
  5. TREPROSTINIL DIOLAMIN [Suspect]
     Active Substance: TREPROSTINIL DIOLAMINE
     Indication: PRODUCT USED FOR UNKNOWN INDICATION
     Dosage: 2.5 MG, TID
     Route: 065
  6. RIOCIGUAT. [Suspect]
     Active Substance: RIOCIGUAT
     Dosage: 2.5 UNK, UNK
     Route: 065
  7. DOXEPIN [Concomitant]
     Active Substance: DOXEPIN
  8. TREPROSTINIL DIOLAMIN [Suspect]
     Active Substance: TREPROSTINIL DIOLAMINE
     Dosage: 2.625 MG, QAM
     Route: 065
  9. OXYCODONE [Concomitant]
     Active Substance: OXYCODONE
  10. FUROSEMIDE. [Concomitant]
     Active Substance: FUROSEMIDE
  11. XARELTO [Concomitant]
     Active Substance: RIVAROXABAN
  12. LOSARTAN. [Concomitant]
     Active Substance: LOSARTAN
  13. SPIRONOLACTONE. [Concomitant]
     Active Substance: SPIRONOLACTONE
  14. DIGOXIN. [Concomitant]
     Active Substance: DIGOXIN
  15. TREPROSTINIL DIOLAMIN [Suspect]
     Active Substance: TREPROSTINIL DIOLAMINE
     Dosage: 2.5 MG, BID
     Route: 065
  16. BUMEX [Concomitant]
     Active Substance: BUMETANIDE

REACTIONS (15)
  - Headache [Recovered/Resolved]
  - Pulmonary veno-occlusive disease [Recovered/Resolved]
  - Mixed connective tissue disease [Recovered/Resolved with Sequelae]
  - Lung disorder [Recovered/Resolved]
  - Pain in jaw [Recovering/Resolving]
  - Off label use [Unknown]
  - Pulmonary hypertension [Recovered/Resolved with Sequelae]
  - Fluid overload [Recovered/Resolved]
  - Oedema peripheral [Recovered/Resolved]
  - Brain natriuretic peptide increased [Recovering/Resolving]
  - Right ventricular failure [Recovered/Resolved with Sequelae]
  - Walking distance test abnormal [Recovered/Resolved]
  - Condition aggravated [Recovered/Resolved with Sequelae]
  - Nausea [Recovered/Resolved]
  - Dyspnoea exertional [Recovered/Resolved with Sequelae]

NARRATIVE: CASE EVENT DATE: 20160408
